FAERS Safety Report 6578134-5 (Version None)
Quarter: 2010Q1

REPORT INFORMATION
  Report Type: 
  Country: None (occurrence: None)
  Receive Date: 20100211
  Receipt Date: 20100202
  Transmission Date: 20100710
  Serious: Yes (Hospitalization)
  Sender: FDA-Public Use
  Company Number: GB-PFIZER INC-2010014086

PATIENT
  Age: 66 Year
  Sex: Male

DRUGS (9)
  1. PREDNISOLONE [Suspect]
     Indication: PROSTATE CANCER
     Dosage: UNK
     Route: 048
     Dates: start: 20090602, end: 20100201
  2. BLINDED *NO SUBJECT DRUG [Suspect]
     Dosage: UNK
     Route: 048
     Dates: start: 20090602, end: 20100201
  3. BLINDED *PLACEBO [Suspect]
     Dosage: UNK
     Route: 048
     Dates: start: 20090602, end: 20100201
  4. BLINDED SUNITINIB MALATE [Suspect]
     Dosage: UNK
     Route: 048
     Dates: start: 20090602, end: 20100201
  5. DOMPERIDONE [Concomitant]
     Indication: NAUSEA
     Dosage: 10 MG, UNK
     Route: 048
     Dates: start: 20080612
  6. ZOPICLONE [Concomitant]
     Indication: INSOMNIA
     Dosage: UNK
     Route: 048
     Dates: start: 20070928
  7. LEUPROLIDE ACETATE [Concomitant]
     Indication: PROSTATE CANCER
     Dosage: UNK
     Dates: start: 20060828
  8. OMEPRAZOLE [Concomitant]
     Indication: DYSPEPSIA
     Dosage: UNK
     Route: 048
     Dates: start: 20090922
  9. ANUSOL [Concomitant]
     Indication: PROCTALGIA
     Dosage: UNK
     Route: 061
     Dates: start: 20091208

REACTIONS (1)
  - ANAL ABSCESS [None]
